FAERS Safety Report 21484288 (Version 1)
Quarter: 2022Q4

REPORT INFORMATION
  Report Type: Spontaneous
  Country: FR (occurrence: FR)
  Receive Date: 20221020
  Receipt Date: 20221020
  Transmission Date: 20230112
  Serious: Yes (Hospitalization)
  Sender: FDA-Public Use
  Company Number: None

PATIENT
  Age: 72 Year
  Sex: Female
  Weight: 69 kg

DRUGS (10)
  1. CYMBALTA [Suspect]
     Active Substance: DULOXETINE HYDROCHLORIDE
     Indication: Product used for unknown indication
     Dosage: 7 DOSAGE FORM, UNKNOWN
     Route: 048
     Dates: start: 20220926
  2. KARDEGIC [Suspect]
     Active Substance: ASPIRIN DL-LYSINE
     Indication: Product used for unknown indication
     Dosage: 7 DOSAGE FORM, UNKNOWN
     Route: 048
     Dates: start: 20220926
  3. AMLODIPINE [Suspect]
     Active Substance: AMLODIPINE BESYLATE
     Indication: Product used for unknown indication
     Dosage: 35 MG, UNKNOWN
     Route: 048
     Dates: start: 20220926
  4. ANETHOLTRITHION [Suspect]
     Active Substance: ANETHOLTRITHION
     Indication: Product used for unknown indication
     Dosage: 42 DOSAGE FORM, UNKNOWN
     Route: 048
     Dates: start: 20220926
  5. TRANXENE [Suspect]
     Active Substance: CLORAZEPATE DIPOTASSIUM
     Indication: Product used for unknown indication
     Dosage: 14 DOSAGE FORM, UNKNOWN
     Route: 048
     Dates: start: 20220926
  6. LAMOTRIGINE [Suspect]
     Active Substance: LAMOTRIGINE
     Indication: Product used for unknown indication
     Dosage: 1400 MG, UNKNOWN
     Route: 048
     Dates: start: 20220926
  7. LANSOPRAZOLE [Suspect]
     Active Substance: LANSOPRAZOLE
     Indication: Product used for unknown indication
     Dosage: 210 MG, UNKNOWN
     Route: 048
     Dates: start: 20220926
  8. ATORVASTATIN [Suspect]
     Active Substance: ATORVASTATIN
     Indication: Product used for unknown indication
     Dosage: 560 MG, UNKNOWN
     Route: 048
     Dates: start: 20220926
  9. MELATONIN [Suspect]
     Active Substance: MELATONIN
     Indication: Product used for unknown indication
     Dosage: 7 DOSAGE FORM, UNKNOWN
     Route: 048
     Dates: start: 20220926
  10. BISOPROLOL FUMARATE [Suspect]
     Active Substance: BISOPROLOL FUMARATE
     Indication: Product used for unknown indication
     Dosage: 17.5 MG, UNKNOWN
     Route: 048
     Dates: start: 20220926

REACTIONS (2)
  - Poisoning deliberate [Recovered/Resolved]
  - Confusional state [Recovered/Resolved]

NARRATIVE: CASE EVENT DATE: 20220926
